FAERS Safety Report 25059345 (Version 1)
Quarter: 2025Q1

REPORT INFORMATION
  Report Type: Report from Study
  Country: US (occurrence: US)
  Receive Date: 20250310
  Receipt Date: 20250310
  Transmission Date: 20250408
  Serious: Yes (Other)
  Sender: ABBVIE
  Company Number: US-ABBVIE-6132680

PATIENT
  Age: 73 Year
  Sex: Female
  Weight: 92.986 kg

DRUGS (1)
  1. HUMIRA [Suspect]
     Active Substance: ADALIMUMAB
     Indication: Psoriatic arthropathy
     Dosage: CITRATE FREE
     Route: 058
     Dates: start: 2020, end: 202410

REACTIONS (6)
  - Knee arthroplasty [Recovering/Resolving]
  - Cerebrovascular accident [Recovering/Resolving]
  - Osteoarthritis [Recovered/Resolved]
  - Wrist fracture [Recovering/Resolving]
  - Fall [Recovering/Resolving]
  - Arthropathy [Unknown]

NARRATIVE: CASE EVENT DATE: 20240501
